FAERS Safety Report 7867729-4 (Version None)
Quarter: 2011Q4

REPORT INFORMATION
  Report Type: 
  Country: None (occurrence: None)
  Receive Date: 20111028
  Receipt Date: 20110225
  Transmission Date: 20120403
  Serious: No
  Sender: FDA-Public Use
  Company Number: US-ENDO PHARMACEUTICALS INC.-FURO20110006

PATIENT
  Sex: Female

DRUGS (16)
  1. SYNTHROID [Concomitant]
  2. HYDROCHLOROTHIAZIDE [Concomitant]
  3. FLECAINIDE ACETATE [Concomitant]
  4. LANTUS [Suspect]
     Indication: TYPE 2 DIABETES MELLITUS
     Dosage: ONCE DAILY
  5. NOVOLOG [Suspect]
     Indication: TYPE 2 DIABETES MELLITUS
     Dosage: UNK
  6. COUMADIN [Concomitant]
  7. ALEVE [Concomitant]
  8. POTASSIUM [Concomitant]
  9. PROTONIX [Concomitant]
  10. FUROSEMIDE [Suspect]
     Indication: OEDEMA PERIPHERAL
     Dosage: UNK
     Route: 048
  11. CYCLOPHOSPHAMIDE [Concomitant]
  12. LISINOPRIL [Concomitant]
  13. DIGOXIN [Concomitant]
  14. XANAX [Concomitant]
  15. CRESTOR [Concomitant]
  16. ALBUTEROL [Concomitant]

REACTIONS (9)
  - HYPOGLYCAEMIA [None]
  - FATIGUE [None]
  - GAIT DISTURBANCE [None]
  - PAIN [None]
  - SWELLING [None]
  - VISUAL ACUITY REDUCED [None]
  - DRUG INTERACTION [None]
  - HEART RATE INCREASED [None]
  - HYPERHIDROSIS [None]
